FAERS Safety Report 8354632-9 (Version None)
Quarter: 2012Q2

REPORT INFORMATION
  Report Type: 
  Country: None (occurrence: None)
  Receive Date: 20120511
  Receipt Date: 20120508
  Transmission Date: 20120825
  Serious: Yes (Hospitalization, Disabling)
  Sender: FDA-Public Use
  Company Number: US-MERCK-1110USA01561

PATIENT
  Age: 62 Year
  Sex: Female

DRUGS (5)
  1. NORVASC [Concomitant]
     Route: 065
  2. ZOCOR [Concomitant]
     Route: 048
  3. LISINOPRIL [Concomitant]
     Route: 065
  4. FOSAMAX [Suspect]
     Indication: OSTEOPOROSIS
     Route: 048
     Dates: start: 20000101
  5. METOPROLOL [Concomitant]
     Route: 065

REACTIONS (4)
  - TOOTH DISORDER [None]
  - FEMUR FRACTURE [None]
  - ASTHMA [None]
  - ADVERSE EVENT [None]
